FAERS Safety Report 9841322 (Version 5)
Quarter: 2014Q1

REPORT INFORMATION
  Report Type: Report from Study
  Country: DE (occurrence: DE)
  Receive Date: 20140124
  Receipt Date: 20140306
  Transmission Date: 20141002
  Serious: Yes (Hospitalization)
  Sender: FDA-Public Use
  Company Number: DE-JNJFOC-20140110571

PATIENT
  Age: 13 Year
  Sex: Female
  Weight: 32.3 kg

DRUGS (3)
  1. REMICADE [Suspect]
     Indication: CROHN^S DISEASE
     Route: 042
     Dates: start: 20131220, end: 20131220
  2. REMICADE [Suspect]
     Indication: CROHN^S DISEASE
     Route: 042
     Dates: start: 20130306, end: 20131108
  3. AZATHIOPRINE [Concomitant]
     Route: 065

REACTIONS (4)
  - Anal fistula [Recovered/Resolved with Sequelae]
  - Crohn^s disease [Recovered/Resolved with Sequelae]
  - Abscess [Recovered/Resolved]
  - Blood iron decreased [Unknown]
